FAERS Safety Report 5366310-9 (Version None)
Quarter: 2007Q2

REPORT INFORMATION
  Report Type: 
  Country: None (occurrence: None)
  Receive Date: 20070620
  Receipt Date: 20070620
  Transmission Date: 20071010
  Serious: Yes (Life-Threatening, Hospitalization)
  Sender: FDA-Public Use
  Company Number: None

PATIENT
  Age: 75 Year
  Sex: Male
  Weight: 67 kg

DRUGS (6)
  1. LISINOPRIL [Suspect]
     Indication: HYPERTENSION
     Dosage: 20 MG P.O. DAILY
     Route: 048
     Dates: start: 20070201, end: 20070420
  2. CLOPIDOGREL BISULFATE [Concomitant]
  3. METOPROLOL TARTRATE [Concomitant]
  4. AMITRIPTYLINE HCL [Concomitant]
  5. PROPOXYPHENE HCL AND ACETAMINOPHEN [Concomitant]
  6. ATORVASTATIN CALCIUM [Concomitant]

REACTIONS (2)
  - HYPERKALAEMIA [None]
  - RENAL FAILURE [None]
